FAERS Safety Report 11931352 (Version 1)
Quarter: 2016Q1

REPORT INFORMATION
  Report Type: Spontaneous
  Country: US (occurrence: US)
  Receive Date: 20160120
  Receipt Date: 20160120
  Transmission Date: 20160526
  Serious: No
  Sender: FDA-Public Use
  Company Number: US-IMPAX LABORATORIES, INC-2015-IPXL-00606

PATIENT
  Age: 41 Year
  Sex: Female
  Weight: 58.5 kg

DRUGS (1)
  1. BUPROPION XL [Suspect]
     Active Substance: BUPROPION
     Indication: POSTPARTUM DEPRESSION
     Dosage: 150 MG, DAILY
     Route: 065

REACTIONS (1)
  - Rash [Not Recovered/Not Resolved]

NARRATIVE: CASE EVENT DATE: 201505
